FAERS Safety Report 20489063 (Version 1)
Quarter: 2022Q1

REPORT INFORMATION
  Report Type: Spontaneous
  Country: CA (occurrence: CA)
  Receive Date: 20220218
  Receipt Date: 20220218
  Transmission Date: 20220424
  Serious: Yes (Other)
  Sender: FDA-Public Use
  Company Number: None

PATIENT

DRUGS (1)
  1. QUETIAPINE FUMARATE [Suspect]
     Active Substance: QUETIAPINE FUMARATE
     Indication: Product used for unknown indication
     Route: 048

REACTIONS (9)
  - Blindness [Unknown]
  - Brain injury [Unknown]
  - Constipation [Unknown]
  - Disability [Unknown]
  - Heart rate increased [Unknown]
  - Malaise [Unknown]
  - Neuroleptic malignant syndrome [Unknown]
  - Renal failure [Unknown]
  - Vomiting [Unknown]
